FAERS Safety Report 4786943-8 (Version None)
Quarter: 2005Q3

REPORT INFORMATION
  Report Type: 
  Country: None (occurrence: None)
  Receive Date: 20050930
  Receipt Date: 20050228
  Transmission Date: 20060218
  Serious: Yes (Death)
  Sender: FDA-Public Use
  Company Number: 2005FR-00328

PATIENT
  Age: 88 Year
  Sex: Female

DRUGS (1)
  1. PERFALGAN INFUSION 10 MG/ML (PARACETAMOL) [Suspect]
     Dosage: 1G/100ML INTRAVENOUS
     Route: 042

REACTIONS (3)
  - AIR EMBOLISM [None]
  - COMA [None]
  - CONVULSION [None]
